FAERS Safety Report 15591295 (Version 1)
Quarter: 2018Q4

REPORT INFORMATION
  Report Type: Spontaneous
  Country: US (occurrence: US)
  Receive Date: 20181106
  Receipt Date: 20181106
  Transmission Date: 20190205
  Serious: No
  Sender: FDA-Public Use
  Company Number: US-ELI_LILLY_AND_COMPANY-US201811001705

PATIENT
  Sex: Female

DRUGS (1)
  1. GALCANEZUMAB 120MG [Suspect]
     Active Substance: GALCANEZUMAB
     Indication: MIGRAINE
     Dosage: 120 MG, SINGLE
     Route: 058
     Dates: start: 20181029

REACTIONS (5)
  - Headache [Unknown]
  - Tinnitus [Unknown]
  - Coordination abnormal [Unknown]
  - Vision blurred [Unknown]
  - Vertigo [Unknown]

NARRATIVE: CASE EVENT DATE: 20181029
